FAERS Safety Report 21494170 (Version 1)
Quarter: 2022Q4

REPORT INFORMATION
  Report Type: Spontaneous
  Country: FR (occurrence: FR)
  Receive Date: 20221021
  Receipt Date: 20221021
  Transmission Date: 20230112
  Serious: Yes (Death)
  Sender: FDA-Public Use
  Company Number: None

PATIENT
  Age: 67 Year
  Sex: Male
  Weight: 90 kg

DRUGS (8)
  1. ACETAMINOPHEN [Suspect]
     Active Substance: ACETAMINOPHEN
     Indication: Pain
     Dosage: 3G PER DAY?ROA-20045000
     Route: 042
     Dates: start: 20220826, end: 20220903
  2. CEFAZOLIN [Concomitant]
     Active Substance: CEFAZOLIN
     Indication: Device related infection
     Dosage: 5MG EVERY 12H?ROA-20045000
     Route: 042
     Dates: start: 20220825
  3. PANTOPRAZOLE [Concomitant]
     Active Substance: PANTOPRAZOLE
     Indication: Gastritis
     Dosage: 40MG 2 TIMES
     Route: 065
     Dates: start: 20220901
  4. LOVENOX [Concomitant]
     Active Substance: ENOXAPARIN SODIUM
     Indication: Deep vein thrombosis
     Dosage: 0.7 ML MORNING AND EVENING?ROA-20045000
     Route: 042
     Dates: start: 20220908, end: 20220909
  5. LOVENOX [Concomitant]
     Active Substance: ENOXAPARIN SODIUM
     Indication: Pulmonary embolism
     Dosage: 0.8 ML MORNING AND EVENING?ROA-20045000
     Route: 042
     Dates: start: 20220829, end: 20220902
  6. LOVENOX [Concomitant]
     Active Substance: ENOXAPARIN SODIUM
     Dosage: 0.8ML MORNING AND EVENING?ROA-20045000
     Route: 042
     Dates: start: 20220906, end: 20220908
  7. SEROPRAM 40 mg/1 ml, dilutable solution for infusion [Concomitant]
     Indication: Product used for unknown indication
     Dosage: NOT SPECIFIED?ROA-20045000
     Route: 042
     Dates: start: 20220828, end: 20220902
  8. OXYCODONE [Concomitant]
     Active Substance: OXYCODONE
     Indication: Pain
     Dosage: OXYCODONE LP 10MG?ROA-20053000
     Route: 048
     Dates: start: 20220905

REACTIONS (2)
  - Metabolic acidosis [Fatal]
  - Acute kidney injury [Fatal]

NARRATIVE: CASE EVENT DATE: 20220905
